FAERS Safety Report 8939894 (Version 2)
Quarter: 2012Q4

REPORT INFORMATION
  Report Type: 
  Country: CN (occurrence: CN)
  Receive Date: 20121203
  Receipt Date: 20121204
  Transmission Date: 20130627
  Serious: Yes (Death)
  Sender: FDA-Public Use
  Company Number: CN-BAYER-2012-123389

PATIENT
  Sex: Male

DRUGS (2)
  1. AVELOX [Suspect]
     Dosage: UNK
  2. CORDARONE [Interacting]

REACTIONS (2)
  - Death [Fatal]
  - Drug interaction [None]
